FAERS Safety Report 8894016 (Version 2)
Quarter: 2013Q1

REPORT INFORMATION
  Report Type: Spontaneous
  Country: CA (occurrence: CA)
  Receive Date: 20121108
  Receipt Date: 20130201
  Transmission Date: 20140127
  Serious: Yes (Hospitalization)
  Sender: FDA-Public Use
  Company Number: CA-PFIZER INC-2012277338

PATIENT
  Age: 19 Year
  Sex: Female

DRUGS (3)
  1. METRONIDAZOLE [Suspect]
     Dosage: UNK
     Route: 065
  2. CIPROFLOXACIN [Suspect]
     Dosage: UNK
     Route: 065
  3. DOMPERIDONE [Suspect]
     Dosage: UNK
     Route: 048

REACTIONS (2)
  - Blood potassium decreased [Recovered/Resolved]
  - Long QT syndrome [Recovered/Resolved]
